FAERS Safety Report 5943674-6 (Version None)
Quarter: 2008Q4

REPORT INFORMATION
  Report Type: 
  Country: None (occurrence: None)
  Receive Date: 20081104
  Receipt Date: 20081020
  Transmission Date: 20090506
  Serious: Yes (Hospitalization, Other)
  Sender: FDA-Public Use
  Company Number: SPI200800512

PATIENT
  Age: 39 Year
  Sex: Female
  Weight: 99.8 kg

DRUGS (4)
  1. AMITIZA [Suspect]
     Indication: IRRITABLE BOWEL SYNDROME
     Dosage: 24 MCG, PRN, ORAL
     Route: 048
     Dates: start: 20070701, end: 20080811
  2. TOPROL-XL [Concomitant]
  3. LEVOXYL [Concomitant]
  4. ORAL CONTRACEPTIVE NOS (ORAL CONTRACEPTIVE NOS) [Concomitant]

REACTIONS (2)
  - POSTOPERATIVE WOUND INFECTION [None]
  - SMALL INTESTINAL OBSTRUCTION [None]
